FAERS Safety Report 25093692 (Version 1)
Quarter: 2025Q1

REPORT INFORMATION
  Report Type: Spontaneous
  Country: GB (occurrence: GB)
  Receive Date: 20250319
  Receipt Date: 20250319
  Transmission Date: 20250409
  Serious: Yes (Other)
  Sender: TEVA
  Company Number: GB-MHRA-TPP23002462C1001958YC1741598553716

PATIENT
  Age: 81 Year
  Sex: Male
  Weight: 77 kg

DRUGS (16)
  1. RAMIPRIL [Suspect]
     Active Substance: RAMIPRIL
     Indication: Rash
     Route: 048
     Dates: start: 20240806, end: 20250203
  2. AMITRIPTYLINE HYDROCHLORIDE [Concomitant]
     Active Substance: AMITRIPTYLINE HYDROCHLORIDE
     Indication: Ill-defined disorder
     Dosage: AT NIGHT
     Route: 048
     Dates: start: 20250310
  3. AMLODIPINE [Concomitant]
     Active Substance: AMLODIPINE BESYLATE
     Indication: Ill-defined disorder
     Route: 048
     Dates: start: 20250203
  4. SOOLANTRA [Concomitant]
     Active Substance: IVERMECTIN
     Indication: Rosacea
     Route: 061
     Dates: start: 20250307
  5. CARBOMER [Concomitant]
     Active Substance: CARBOMER
     Indication: Ill-defined disorder
     Dates: start: 20250103
  6. LYMECYCLINE [Concomitant]
     Active Substance: LYMECYCLINE
     Indication: Ill-defined disorder
     Dosage: ON EMPTY STOMACH
     Route: 048
     Dates: start: 20250131, end: 20250228
  7. BISOPROLOL [Concomitant]
     Active Substance: BISOPROLOL
     Indication: Ill-defined disorder
     Route: 048
     Dates: start: 20190328
  8. COCODAMOL [Concomitant]
     Active Substance: ACETAMINOPHEN\CODEINE PHOSPHATE
     Indication: Ill-defined disorder
     Route: 048
     Dates: start: 20231117
  9. MIRVASO [Concomitant]
     Active Substance: BRIMONIDINE TARTRATE
     Indication: Erythema
     Dosage: THINLY TO RED AREAS ON FACE
     Route: 061
     Dates: start: 20240809
  10. EDOXABAN [Concomitant]
     Active Substance: EDOXABAN
     Indication: Ill-defined disorder
     Dosage: (THIS REPLACES APIXA...
     Route: 048
     Dates: start: 20230331
  11. LANSOPRAZOLE [Concomitant]
     Active Substance: LANSOPRAZOLE
     Indication: Ill-defined disorder
     Route: 048
     Dates: start: 20190328
  12. BETAMETHASONE VALERATE [Concomitant]
     Active Substance: BETAMETHASONE VALERATE
     Indication: Rash
     Route: 061
     Dates: start: 20250307
  13. TAMSULOSIN HYDROCHLORIDE [Concomitant]
     Active Substance: TAMSULOSIN HYDROCHLORIDE
     Indication: Ill-defined disorder
     Route: 048
     Dates: start: 20190520
  14. FOLIC ACID [Concomitant]
     Active Substance: FOLIC ACID
     Indication: Ill-defined disorder
     Dosage: FOR 3 MTHS, TPP YC - PLEASE RECLASSIFY
     Route: 048
     Dates: start: 20250228
  15. ATORVASTATIN [Concomitant]
     Active Substance: ATORVASTATIN
     Indication: Ill-defined disorder
     Route: 048
     Dates: start: 20190328
  16. XAILIN NIGHT [Concomitant]
     Indication: Ill-defined disorder
     Route: 047
     Dates: start: 20250103

REACTIONS (2)
  - Mood altered [Recovered/Resolved]
  - Irritability [Unknown]

NARRATIVE: CASE EVENT DATE: 20250310
